FAERS Safety Report 6233020-5 (Version None)
Quarter: 2009Q2

REPORT INFORMATION
  Report Type: 
  Country: None (occurrence: None)
  Receive Date: 20090617
  Receipt Date: 20090605
  Transmission Date: 20091009
  Serious: Yes (Hospitalization)
  Sender: FDA-Public Use
  Company Number: B0566381A

PATIENT
  Age: 79 Year
  Sex: Male
  Weight: 69 kg

DRUGS (6)
  1. MELPHALAN HYDROCHLORIDE [Suspect]
     Indication: MULTIPLE MYELOMA
     Dates: start: 20070511, end: 20070514
  2. PREDNISONE [Suspect]
     Indication: MULTIPLE MYELOMA
     Dates: start: 20070511, end: 20070514
  3. REVLIMID [Suspect]
     Indication: MULTIPLE MYELOMA
     Dates: start: 20070511, end: 20070518
  4. PANTOPRAZOL [Concomitant]
     Dosage: 20MG PER DAY
  5. XIPAMIDE [Concomitant]
     Dosage: 10MG PER DAY
  6. ACETYLSALICYLIC ACID [Concomitant]
     Dosage: 100MG PER DAY

REACTIONS (14)
  - BLOOD BILIRUBIN INCREASED [None]
  - CHOLANGITIS [None]
  - CHOLESTASIS [None]
  - CHROMATURIA [None]
  - FAECES PALE [None]
  - FATIGUE [None]
  - GAMMA-GLUTAMYLTRANSFERASE INCREASED [None]
  - HEPATIC FUNCTION ABNORMAL [None]
  - HEPATOMEGALY [None]
  - HYPERBILIRUBINAEMIA [None]
  - JAUNDICE [None]
  - LIGHT CHAIN DISEASE [None]
  - NAUSEA [None]
  - PRURITUS [None]
